FAERS Safety Report 8044564-8 (Version None)
Quarter: 2012Q1

REPORT INFORMATION
  Report Type: 
  Country: None (occurrence: None)
  Receive Date: 20120113
  Receipt Date: 20120113
  Transmission Date: 20120608
  Serious: Yes (Other)
  Sender: FDA-Public Use
  Company Number: None

PATIENT
  Age: 68 Year
  Sex: Female
  Weight: 65.317 kg

DRUGS (1)
  1. SIMVASTATIN [Suspect]
     Indication: BLOOD CHOLESTEROL
     Dosage: 80
     Route: 048
     Dates: start: 20110205, end: 20120109

REACTIONS (7)
  - PAIN IN EXTREMITY [None]
  - MOBILITY DECREASED [None]
  - DYSSTASIA [None]
  - ARTHRALGIA [None]
  - MUSCULOSKELETAL PAIN [None]
  - GAIT DISTURBANCE [None]
  - MUSCLE SPASMS [None]
